FAERS Safety Report 18383392 (Version 2)
Quarter: 2020Q4

REPORT INFORMATION
  Report Type: Report from Study
  Country: BR (occurrence: BR)
  Receive Date: 20201014
  Receipt Date: 20201122
  Transmission Date: 20210114
  Serious: Yes (Other)
  Sender: FDA-Public Use
  Company Number: PHHY2018BR061671

PATIENT
  Age: 36 Year
  Sex: Female
  Weight: 57 kg

DRUGS (2)
  1. COSENTYX [Suspect]
     Active Substance: SECUKINUMAB
     Indication: PSORIATIC ARTHROPATHY
     Dosage: 300 MG, QW
     Route: 058
     Dates: start: 20180704, end: 20181221
  2. COSENTYX [Suspect]
     Active Substance: SECUKINUMAB
     Dosage: UNK
     Route: 065
     Dates: end: 2020

REACTIONS (12)
  - Arthralgia [Unknown]
  - Wound [Unknown]
  - Intestinal pseudo-obstruction [Recovered/Resolved]
  - Macule [Not Recovered/Not Resolved]
  - Urinary tract infection [Recovered/Resolved]
  - Eye disorder [Unknown]
  - Functional gastrointestinal disorder [Recovered/Resolved]
  - Malaise [Recovered/Resolved]
  - Faecal vomiting [Recovered/Resolved]
  - Pain [Recovered/Resolved]
  - Discomfort [Recovered/Resolved]
  - Feeling abnormal [Unknown]

NARRATIVE: CASE EVENT DATE: 20180711
